FAERS Safety Report 11163780 (Version 1)
Quarter: 2015Q2

REPORT INFORMATION
  Report Type: Spontaneous
  Country: US (occurrence: US)
  Receive Date: 20150604
  Receipt Date: 20150604
  Transmission Date: 20150821
  Serious: No
  Sender: FDA-Public Use
  Company Number: US-SUN PHARMACEUTICAL INDUSTRIES LTD-2015SUN00751

PATIENT

DRUGS (1)
  1. OXYCODONE HCL C-II TABS 30MG [Suspect]
     Active Substance: OXYCODONE HYDROCHLORIDE
     Indication: BACK PAIN
     Dosage: 6 TABLETS, UNK
     Route: 065
     Dates: start: 20150228

REACTIONS (3)
  - Therapeutic response decreased [Unknown]
  - Intentional product use issue [Unknown]
  - Abdominal discomfort [Unknown]

NARRATIVE: CASE EVENT DATE: 201503
